FAERS Safety Report 23563719 (Version 1)
Quarter: 2024Q1

REPORT INFORMATION
  Report Type: Other
  Country: GB (occurrence: GB)
  Receive Date: 20240226
  Receipt Date: 20240226
  Transmission Date: 20240410
  Serious: Yes (Hospitalization)
  Sender: FDA-Public Use
  Company Number: GB-SSPHARMA-2024GBSSP00008

PATIENT
  Age: 86 Year
  Sex: Female

DRUGS (1)
  1. ROCALTROL [Suspect]
     Active Substance: CALCITRIOL
     Indication: Product used for unknown indication
     Dosage: UNKNOWN
     Route: 065

REACTIONS (1)
  - Hypercalcaemia [Recovered/Resolved]
